FAERS Safety Report 5006967-5 (Version None)
Quarter: 2006Q2

REPORT INFORMATION
  Report Type: 
  Country: None (occurrence: None)
  Receive Date: 20060517
  Receipt Date: 20060506
  Transmission Date: 20061013
  Serious: Yes (Hospitalization)
  Sender: FDA-Public Use
  Company Number: 6022514F

PATIENT

DRUGS (1)
  1. NIASPAN [Suspect]
     Indication: DYSLIPIDAEMIA
     Dates: start: 20060426, end: 20060505

REACTIONS (2)
  - ANGINA PECTORIS [None]
  - CONDITION AGGRAVATED [None]
